FAERS Safety Report 5197228-2 (Version None)
Quarter: 2006Q4

REPORT INFORMATION
  Report Type: 
  Country: None (occurrence: None)
  Receive Date: 20061227
  Receipt Date: 20061214
  Transmission Date: 20070319
  Serious: Yes (Life-Threatening)
  Sender: FDA-Public Use
  Company Number: T200601374

PATIENT
  Age: 72 Year
  Sex: Male
  Weight: 56 kg

DRUGS (3)
  1. OPTIRAY 160 [Suspect]
     Indication: COMPUTERISED TOMOGRAM ABDOMEN
     Dosage: 100 ML, SINGLE, INTRAVENOUS
     Route: 042
     Dates: start: 20061128, end: 20061129
  2. AMLODIPINE BESILATE (MALODIPINE BESILATE) [Concomitant]
  3. GLYBURIDE [Concomitant]

REACTIONS (3)
  - ANAPHYLACTIC SHOCK [None]
  - INCONTINENCE [None]
  - LOSS OF CONSCIOUSNESS [None]
